FAERS Safety Report 5386572-1 (Version None)
Quarter: 2007Q3

REPORT INFORMATION
  Report Type: 
  Country: None (occurrence: None)
  Receive Date: 20070713
  Receipt Date: 20070622
  Transmission Date: 20080115
  Serious: Yes (Other)
  Sender: FDA-Public Use
  Company Number: B0471740A

PATIENT
  Age: 6 Year
  Sex: Female

DRUGS (5)
  1. RELENZA [Suspect]
     Indication: INFLUENZA
     Dosage: 10MG TWICE PER DAY
     Route: 055
     Dates: start: 20070227, end: 20070303
  2. CALONAL [Concomitant]
     Indication: INFLUENZA
     Route: 048
     Dates: start: 20070227
  3. ASVERIN [Concomitant]
     Indication: INFLUENZA
     Route: 048
     Dates: start: 20070227, end: 20070303
  4. ZESULAN [Concomitant]
     Indication: INFLUENZA
     Dosage: 2.4MG PER DAY
     Route: 048
     Dates: start: 20070227, end: 20070303
  5. MUCODYNE [Concomitant]
     Indication: INFLUENZA
     Dosage: 600MG PER DAY
     Route: 048
     Dates: start: 20070227, end: 20070303

REACTIONS (3)
  - ABNORMAL BEHAVIOUR [None]
  - FEELING ABNORMAL [None]
  - HALLUCINATION [None]
